FAERS Safety Report 9537605 (Version 2)
Quarter: 2013Q4

REPORT INFORMATION
  Report Type: Spontaneous
  Country: CO (occurrence: CO)
  Receive Date: 20130919
  Receipt Date: 20131004
  Transmission Date: 20140711
  Serious: Yes (Other)
  Sender: FDA-Public Use
  Company Number: CO-PFIZER INC-2013270143

PATIENT
  Age: 65 Year
  Sex: Female

DRUGS (6)
  1. LYRICA [Suspect]
     Indication: DIABETIC NEUROPATHY
     Dosage: 75 MG, 1X/DAY
     Route: 048
     Dates: start: 2008, end: 201306
  2. ENALAPRIL [Concomitant]
     Indication: HYPERTENSION
     Dosage: 50 MG, 2X/DAY
     Route: 048
     Dates: start: 2003
  3. METOPROLOL [Concomitant]
     Indication: HYPERTENSION
     Dosage: 50 MG, 2X/DAY
     Route: 048
     Dates: start: 2003
  4. CIPROFIBRATE [Concomitant]
     Indication: DYSLIPIDAEMIA
     Dosage: 100 MG, 1X/DAY
     Route: 048
     Dates: start: 2005
  5. THYROXINE [Concomitant]
     Indication: HYPERTHYROIDISM
     Dosage: 50 UG, 1X/DAY
     Route: 048
     Dates: start: 2006
  6. JANUMET [Concomitant]
     Indication: DIABETES MELLITUS
     Dosage: 2 TABLETS OF 50/100MG, DAILY
     Route: 048
     Dates: start: 2006

REACTIONS (2)
  - Blindness [Not Recovered/Not Resolved]
  - Vein disorder [Recovered/Resolved]
